FAERS Safety Report 13228883 (Version 1)
Quarter: 2017Q1

REPORT INFORMATION
  Report Type: Spontaneous
  Country: US (occurrence: US)
  Receive Date: 20170213
  Receipt Date: 20170213
  Transmission Date: 20170428
  Serious: No
  Sender: FDA-Public Use
  Company Number: US-009507513-1702USA001125

PATIENT

DRUGS (3)
  1. TENOFOVIR [Concomitant]
     Active Substance: TENOFOVIR
     Indication: PROPHYLAXIS AGAINST HIV INFECTION
  2. ISENTRESS [Suspect]
     Active Substance: RALTEGRAVIR POTASSIUM
     Indication: PROPHYLAXIS AGAINST HIV INFECTION
     Route: 048
  3. EMTRICITABINE [Concomitant]
     Active Substance: EMTRICITABINE
     Indication: PROPHYLAXIS AGAINST HIV INFECTION

REACTIONS (1)
  - Adverse event [Unknown]
